FAERS Safety Report 9593133 (Version 2)
Quarter: 2013Q4

REPORT INFORMATION
  Report Type: Spontaneous
  Country: US (occurrence: US)
  Receive Date: 20131004
  Receipt Date: 20131011
  Transmission Date: 20140711
  Serious: Yes (Death)
  Sender: FDA-Public Use
  Company Number: US-PFIZER INC-2013283343

PATIENT
  Age: 63 Year
  Sex: Male

DRUGS (1)
  1. CAMPTOSAR [Suspect]
     Indication: PANCREATIC DISORDER
     Dosage: 220 MG, CYCLIC, EVERY 2 WEEKS
     Dates: start: 20130729

REACTIONS (3)
  - Respiratory distress [Fatal]
  - Disease progression [Fatal]
  - Pancreatic carcinoma [Fatal]
